FAERS Safety Report 24364120 (Version 7)
Quarter: 2024Q4

REPORT INFORMATION
  Report Type: Spontaneous
  Country: US (occurrence: US)
  Receive Date: 20240925
  Receipt Date: 20241030
  Transmission Date: 20250114
  Serious: Yes (Other)
  Sender: ROCHE
  Company Number: US-ROCHE-10000087835

PATIENT
  Age: 76 Year
  Sex: Female
  Weight: 92.53 kg

DRUGS (1)
  1. TENECTEPLASE [Suspect]
     Active Substance: TENECTEPLASE
     Indication: Cerebrovascular accident
     Dosage: ONE TIME BOLUS OVER 5 SECONDS
     Route: 065
     Dates: start: 20240817

REACTIONS (4)
  - Off label use [Unknown]
  - Cerebral haemorrhage [Recovering/Resolving]
  - Cerebral disorder [Recovering/Resolving]
  - Cerebral infarction [Recovering/Resolving]
